FAERS Safety Report 17324968 (Version 2)
Quarter: 2020Q3

REPORT INFORMATION
  Report Type: Report from Study
  Country: None (occurrence: US)
  Receive Date: 20200127
  Receipt Date: 20200806
  Transmission Date: 20201102
  Serious: Yes (Hospitalization)
  Sender: FDA-Public Use
  Company Number: US-ABBVIE-20P-163-3246074-00

PATIENT
  Age: 73 Year
  Sex: Male

DRUGS (2)
  1. IMBRUVICA [Suspect]
     Active Substance: IBRUTINIB
     Indication: WALDENSTROM^S MACROGLOBULINAEMIA
     Route: 048
     Dates: start: 20150820
  2. IMBRUVICA [Suspect]
     Active Substance: IBRUTINIB
     Route: 048
     Dates: start: 201503

REACTIONS (6)
  - Blood immunoglobulin M decreased [Unknown]
  - Blood calcium abnormal [Unknown]
  - Haemorrhage [Unknown]
  - Haematocrit abnormal [Unknown]
  - Rash macular [Unknown]
  - Micrographic skin surgery [Unknown]

NARRATIVE: CASE EVENT DATE: 20200116
